FAERS Safety Report 6203907-8 (Version None)
Quarter: 2009Q2

REPORT INFORMATION
  Report Type: 
  Country: None (occurrence: None)
  Receive Date: 20090527
  Receipt Date: 20090518
  Transmission Date: 20091009
  Serious: Yes (Hospitalization)
  Sender: FDA-Public Use
  Company Number: A0776884A

PATIENT
  Sex: Male
  Weight: 96 kg

DRUGS (3)
  1. SERETIDE [Suspect]
     Dosage: 1PUFF TWICE PER DAY
     Route: 055
     Dates: start: 20081001
  2. ALLOPURINOL [Concomitant]
     Dosage: 300MG PER DAY
     Dates: start: 20030101
  3. AMLODIPINE [Concomitant]
     Dosage: 10MG PER DAY
     Dates: start: 20030101

REACTIONS (5)
  - CHEST DISCOMFORT [None]
  - DRY MOUTH [None]
  - DYSPNOEA [None]
  - FATIGUE [None]
  - PRODUCT QUALITY ISSUE [None]
